FAERS Safety Report 4891843-9 (Version None)
Quarter: 2006Q1

REPORT INFORMATION
  Report Type: 
  Country: None (occurrence: None)
  Receive Date: 20060123
  Receipt Date: 20060109
  Transmission Date: 20060701
  Serious: Yes (Other)
  Sender: FDA-Public Use
  Company Number: GB200601001204

PATIENT
  Age: 37 Year
  Sex: Female

DRUGS (3)
  1. OLANZAPINE [Suspect]
     Dosage: 5 MG , ORAL
     Route: 048
     Dates: start: 20041107, end: 20051221
  2. FEMULEN (ETYNODIOL DIACETATE) [Concomitant]
  3. . [Concomitant]

REACTIONS (1)
  - THROMBOCYTOPENIA [None]
